FAERS Safety Report 13486459 (Version 2)
Quarter: 2017Q3

REPORT INFORMATION
  Report Type: Spontaneous
  Country: US (occurrence: US)
  Receive Date: 20170426
  Receipt Date: 20170807
  Transmission Date: 20171127
  Serious: Yes (Other)
  Sender: FDA-Public Use
  Company Number: US-ELI_LILLY_AND_COMPANY-US201704006889

PATIENT
  Age: 31 Year
  Sex: Male

DRUGS (1)
  1. TALTZ [Suspect]
     Active Substance: IXEKIZUMAB
     Indication: PSORIASIS
     Dosage: 80 MG, UNKNOWN
     Route: 058
     Dates: start: 20170324, end: 20170407

REACTIONS (4)
  - Urticaria [Recovered/Resolved]
  - Facial paralysis [Recovered/Resolved]
  - Pyrexia [Recovered/Resolved]
  - Monoplegia [Recovered/Resolved]

NARRATIVE: CASE EVENT DATE: 20170407
